FAERS Safety Report 5869985-0 (Version None)
Quarter: 2008Q3

REPORT INFORMATION
  Report Type: 
  Country: None (occurrence: None)
  Receive Date: 20080904
  Receipt Date: 20080904
  Transmission Date: 20090109
  Serious: Yes (Hospitalization)
  Sender: FDA-Public Use
  Company Number: PHEH1995US02785

PATIENT
  Sex: Female
  Weight: 60.9 kg

DRUGS (11)
  1. NEORAL [Suspect]
     Route: 048
     Dates: start: 19950907
  2. IMURAN [Concomitant]
  3. PREDNISONE TAB [Concomitant]
  4. PRILOSEC [Concomitant]
  5. FLUCONAZOLE [Concomitant]
  6. BACTRIM [Concomitant]
  7. ACYCLOVIR [Concomitant]
  8. LORTAB [Concomitant]
  9. LASIX [Concomitant]
  10. AXID [Concomitant]
  11. ZOFRAN [Concomitant]

REACTIONS (4)
  - ABDOMINAL DISTENSION [None]
  - BLOOD CREATININE INCREASED [None]
  - NEPHROPATHY TOXIC [None]
  - OLIGURIA [None]
